FAERS Safety Report 9975816 (Version 3)
Quarter: 2014Q1

REPORT INFORMATION
  Report Type: Spontaneous
  Country: US (occurrence: US)
  Receive Date: 20140306
  Receipt Date: 20140325
  Transmission Date: 20141002
  Serious: Yes (Hospitalization, Other)
  Sender: FDA-Public Use
  Company Number: US-PFIZER INC-2014065673

PATIENT
  Age: 32 Year
  Sex: Male
  Weight: 86.2 kg

DRUGS (5)
  1. CHANTIX [Suspect]
     Indication: SMOKING CESSATION THERAPY
     Dosage: 0.5 MG, 1X/DAY
     Route: 048
     Dates: start: 201309, end: 2013
  2. CHANTIX [Suspect]
     Dosage: UNK
     Route: 048
     Dates: start: 2013, end: 201311
  3. LORAZEPAM [Concomitant]
     Dosage: UNK
  4. TRAZODONE [Concomitant]
     Dosage: UNK
  5. PROZAC [Concomitant]
     Dosage: UNK

REACTIONS (10)
  - Myocardial infarction [Recovered/Resolved]
  - Angina pectoris [Recovered/Resolved]
  - Limb discomfort [Recovered/Resolved]
  - Hypoaesthesia [Recovered/Resolved]
  - Depression [Unknown]
  - Anxiety [Unknown]
  - Abnormal dreams [Recovered/Resolved]
  - Loss of employment [Unknown]
  - Tobacco user [Not Recovered/Not Resolved]
  - Pain [Unknown]
